FAERS Safety Report 8163090-9 (Version None)
Quarter: 2012Q1

REPORT INFORMATION
  Report Type: 
  Country: None (occurrence: None)
  Receive Date: 20120224
  Receipt Date: 20120130
  Transmission Date: 20120608
  Serious: Yes (Hospitalization)
  Sender: FDA-Public Use
  Company Number: JP-GLAXOSMITHKLINE-B0779151A

PATIENT
  Sex: Female

DRUGS (9)
  1. LAMICTAL [Suspect]
     Dosage: 100MG PER DAY
     Route: 048
     Dates: start: 20120105
  2. AMOXAPINE [Concomitant]
     Indication: DEPRESSION
     Dosage: 75MG PER DAY
     Route: 048
  3. LAMICTAL [Suspect]
     Dosage: 75MG PER DAY
     Route: 048
     Dates: start: 20111229, end: 20120104
  4. CYMBALTA [Concomitant]
     Indication: DEPRESSION
     Dosage: 60MG PER DAY
     Route: 048
  5. LAMICTAL [Suspect]
     Indication: BIPOLAR DISORDER
     Dosage: 25MG PER DAY
     Route: 048
     Dates: start: 20111213, end: 20111221
  6. SEROQUEL [Concomitant]
     Indication: INSOMNIA
     Dosage: 100MG PER DAY
     Route: 048
  7. MAGMITT [Concomitant]
     Indication: CONSTIPATION
     Dosage: 1500MG PER DAY
     Route: 048
  8. LAMICTAL [Suspect]
     Dosage: 50MG PER DAY
     Route: 048
     Dates: start: 20111221, end: 20111228
  9. GASMOTIN [Concomitant]
     Dosage: 15MG PER DAY
     Route: 048

REACTIONS (6)
  - RASH GENERALISED [None]
  - OCULAR HYPERAEMIA [None]
  - CHEILITIS [None]
  - ERYTHEMA [None]
  - DRUG ERUPTION [None]
  - PAPULE [None]
